FAERS Safety Report 23680399 (Version 1)
Quarter: 2024Q1

REPORT INFORMATION
  Report Type: Report from Study
  Country: US (occurrence: US)
  Receive Date: 20240328
  Receipt Date: 20240328
  Transmission Date: 20240409
  Serious: Yes (Hospitalization)
  Sender: FDA-Public Use
  Company Number: US-ABBVIE-5692666

PATIENT
  Sex: Male

DRUGS (1)
  1. VENCLEXTA [Suspect]
     Active Substance: VENETOCLAX
     Indication: Acute myeloid leukaemia
     Dosage: 14 DAYS ON THEN 14 DAYS OFF, FORM STRENGTH: 100 MILLIGRAM
     Route: 048

REACTIONS (1)
  - Staphylococcal infection [Recovered/Resolved]
